FAERS Safety Report 18714232 (Version 3)
Quarter: 2022Q2

REPORT INFORMATION
  Report Type: Report from Study
  Country: US (occurrence: US)
  Receive Date: 20210107
  Receipt Date: 20220502
  Transmission Date: 20220720
  Serious: No
  Sender: FDA-Public Use
  Company Number: NVSC2021US002901

PATIENT
  Age: 1 Year
  Sex: Female

DRUGS (2)
  1. ILARIS [Suspect]
     Active Substance: CANAKINUMAB
     Indication: Pyrexia
     Dosage: 30 MG EVERY 30 DAYS
     Route: 058
  2. ILARIS [Suspect]
     Active Substance: CANAKINUMAB
     Dosage: 45 MG, QMO
     Route: 058
     Dates: start: 20200717

REACTIONS (3)
  - Dyspnoea [Unknown]
  - Inappropriate schedule of product administration [Unknown]
  - Oxygen saturation abnormal [Unknown]
